FAERS Safety Report 7584240-9 (Version None)
Quarter: 2011Q2

REPORT INFORMATION
  Report Type: 
  Country: None (occurrence: None)
  Receive Date: 20110623
  Receipt Date: 20110617
  Transmission Date: 20111010
  Serious: Yes (Hospitalization, Other)
  Sender: FDA-Public Use
  Company Number: 201110625

PATIENT
  Sex: Male

DRUGS (2)
  1. LIORESAL [Suspect]
     Indication: MUSCLE SPASTICITY
     Dosage: DAILY, INTRATHECAL
     Route: 037
  2. MORPHINE [Concomitant]

REACTIONS (14)
  - PRURITUS [None]
  - PYREXIA [None]
  - PARAESTHESIA [None]
  - MUSCLE SPASTICITY [None]
  - HYPERTENSION [None]
  - TINNITUS [None]
  - DRUG WITHDRAWAL SYNDROME [None]
  - WEIGHT DECREASED [None]
  - GRANULOMA [None]
  - CONVULSION [None]
  - COLD SWEAT [None]
  - SCAR [None]
  - LIQUID PRODUCT PHYSICAL ISSUE [None]
  - INFECTION [None]
